FAERS Safety Report 9449407 (Version 1)
Quarter: 2013Q3

REPORT INFORMATION
  Report Type: Spontaneous
  Country: CA (occurrence: CA)
  Receive Date: 20130809
  Receipt Date: 20130809
  Transmission Date: 20140515
  Serious: Yes (Other)
  Sender: FDA-Public Use
  Company Number: CA-ROCHE-1259381

PATIENT
  Sex: Female

DRUGS (15)
  1. XOLAIR [Suspect]
     Indication: ASTHMA
     Route: 058
     Dates: start: 20130722
  2. PLAVIX [Concomitant]
  3. ATORVASTATIN [Concomitant]
  4. IRBESARTAN [Concomitant]
  5. NITROSPRAY (RUSSIA) [Concomitant]
  6. SYNTHYROID [Concomitant]
  7. SANDOMIGRAN [Concomitant]
  8. ASA [Concomitant]
  9. BACLOFEN [Concomitant]
  10. SINGULAIR [Concomitant]
  11. VENTOLIN [Concomitant]
  12. ADVAIR [Concomitant]
  13. REACTINE (CANADA) [Concomitant]
  14. OLOPATADINE [Concomitant]
  15. SYMBICORT [Concomitant]

REACTIONS (3)
  - Malaise [Unknown]
  - Headache [Unknown]
  - Arthralgia [Unknown]
